FAERS Safety Report 8999020 (Version 12)
Quarter: 2013Q2

REPORT INFORMATION
  Report Type: Spontaneous
  Country: GB (occurrence: GB)
  Receive Date: 20130103
  Receipt Date: 20130627
  Transmission Date: 20140414
  Serious: Yes (Death, Other)
  Sender: FDA-Public Use
  Company Number: PHFR2013GB000447

PATIENT
  Age: 55 Year
  Sex: Male

DRUGS (10)
  1. CLOZARIL [Suspect]
     Indication: SCHIZOPHRENIA
     Dosage: UNK
     Route: 048
     Dates: start: 20090728
  2. ARIPIPRAZOLE [Concomitant]
     Dosage: 15 MG DAILY
     Route: 048
  3. CITALOPRAM [Concomitant]
     Indication: DEPRESSION
     Dosage: 20 MG DAILY
     Route: 048
  4. HALOPERIDOL [Concomitant]
     Dosage: 15 MG, PRN
     Route: 048
  5. LANSOPRAZOLE [Concomitant]
     Dosage: 30 MG DAILY
     Route: 048
  6. DOCUSATE [Concomitant]
     Dosage: 400 MG DAILY
     Route: 048
  7. LEVOTHYROXINE [Concomitant]
     Dosage: 50 UG DAILY
     Route: 048
  8. SENNA [Concomitant]
     Dosage: 7.5 MG DAILY
     Route: 048
  9. HYOSCINE [Concomitant]
     Dosage: 0.5 MG DAILY
     Route: 061
  10. DENZAPINE [Concomitant]
     Dosage: UNK
     Dates: start: 201304

REACTIONS (7)
  - Death [Fatal]
  - Hodgkin^s disease [Unknown]
  - Diffuse large B-cell lymphoma [Not Recovered/Not Resolved]
  - White blood cell count decreased [Not Recovered/Not Resolved]
  - Neutrophil count decreased [Recovered/Resolved]
  - White blood cell count increased [Unknown]
  - Neutrophil count increased [Recovered/Resolved]
